FAERS Safety Report 6679069-X (Version None)
Quarter: 2010Q2

REPORT INFORMATION
  Report Type: 
  Country: None (occurrence: None)
  Receive Date: 20100413
  Receipt Date: 20100408
  Transmission Date: 20101027
  Serious: Yes (Other)
  Sender: FDA-Public Use
  Company Number: GB-ASTRAZENECA-2010SE15596

PATIENT
  Sex: Male

DRUGS (4)
  1. CASODEX [Suspect]
     Route: 048
  2. METFORMIN HCL [Concomitant]
  3. TOLBUTAMIDE [Concomitant]
  4. ALLOPURINOL [Concomitant]

REACTIONS (4)
  - ABDOMINAL PAIN UPPER [None]
  - DRUG PRESCRIBING ERROR [None]
  - DYSPNOEA [None]
  - EPISTAXIS [None]
